FAERS Safety Report 6916773 (Version 11)
Quarter: 2014Q1

REPORT INFORMATION
  Report Type: Spontaneous
  Country: US (occurrence: US)
  Receive Date: 20080930
  Receipt Date: 20140116
  Transmission Date: 20141002
  Serious: Yes (Hospitalization, Other)
  Sender: FDA-Public Use
  Company Number: US-BIOGENIDEC-2008BI024817

PATIENT
  Age: 59 Year
  Sex: Female

DRUGS (1)
  1. AVONEX [Suspect]
     Indication: MULTIPLE SCLEROSIS
     Route: 030
     Dates: start: 20050623, end: 20131206

REACTIONS (3)
  - Breast cancer metastatic [Not Recovered/Not Resolved]
  - Thrombosis [Recovered/Resolved]
  - Influenza like illness [Recovered/Resolved]
